FAERS Safety Report 8998390 (Version 2)
Quarter: 2013Q3

REPORT INFORMATION
  Report Type: Report from Study
  Country: ES (occurrence: ES)
  Receive Date: 20130103
  Receipt Date: 20130913
  Transmission Date: 20140515
  Serious: Yes (Other)
  Sender: FDA-Public Use
  Company Number: ES-ROCHE-1172338

PATIENT
  Sex: 0

DRUGS (6)
  1. BEVACIZUMAB [Suspect]
     Indication: COLORECTAL CANCER METASTATIC
     Route: 065
  2. CAPECITABINE [Suspect]
     Indication: COLORECTAL CANCER METASTATIC
     Route: 065
  3. OXALIPLATIN [Suspect]
     Indication: COLORECTAL CANCER METASTATIC
     Route: 065
  4. IRINOTECAN HYDROCHLORIDE [Suspect]
     Indication: COLORECTAL CANCER METASTATIC
     Route: 065
  5. FLUOROURACIL [Suspect]
     Indication: COLORECTAL CANCER METASTATIC
     Route: 065
  6. FOLINIC ACID [Suspect]
     Indication: COLORECTAL CANCER METASTATIC
     Route: 065

REACTIONS (18)
  - Osteomyelitis [Unknown]
  - Neutropenia [Unknown]
  - Intestinal obstruction [Unknown]
  - Intestinal perforation [Unknown]
  - Paraesthesia [Unknown]
  - Skin toxicity [Unknown]
  - Neurotoxicity [Unknown]
  - Haematotoxicity [Unknown]
  - Gastrointestinal toxicity [Unknown]
  - Diarrhoea [Unknown]
  - Thrombocytopenia [Unknown]
  - Vomiting [Unknown]
  - Hypersensitivity [Unknown]
  - Epistaxis [Unknown]
  - Hypertension [Unknown]
  - Gastrointestinal haemorrhage [Unknown]
  - Deep vein thrombosis [Unknown]
  - Stomatitis [Unknown]
